FAERS Safety Report 10608654 (Version 2)
Quarter: 2015Q3

REPORT INFORMATION
  Report Type: Other
  Country: DE (occurrence: DE)
  Receive Date: 20141125
  Receipt Date: 20150901
  Transmission Date: 20151125
  Serious: Yes (Congenital Anomaly)
  Sender: FDA-Public Use
  Company Number: DE-NOVEN-14DE010877

PATIENT
  Sex: Female
  Weight: 3.28 kg

DRUGS (2)
  1. FEMIBION [Concomitant]
     Active Substance: VITAMINS
     Indication: PRODUCT USED FOR UNKNOWN INDICATION
     Dosage: UNK
     Dates: start: 20131112, end: 20140623
  2. PAROXETINE [Suspect]
     Active Substance: PAROXETINE\PAROXETINE HYDROCHLORIDE
     Indication: DEPRESSION
     Dosage: DAILY DOSAGE BETWEEN 10 AND 20 MG/D
     Route: 064
     Dates: start: 20130926, end: 20140623

REACTIONS (1)
  - Congenital hydronephrosis [Unknown]
